FAERS Safety Report 16568717 (Version 1)
Quarter: 2019Q3

REPORT INFORMATION
  Report Type: Spontaneous
  Country: US (occurrence: US)
  Receive Date: 20190713
  Receipt Date: 20190713
  Transmission Date: 20191004
  Serious: Yes (Death)
  Sender: FDA-Public Use
  Company Number: US-ROCHE-2352946

PATIENT
  Sex: Female

DRUGS (19)
  1. BACTRIM [Concomitant]
     Active Substance: SULFAMETHOXAZOLE\TRIMETHOPRIM
  2. IRON [Concomitant]
     Active Substance: IRON
  3. ESBRIET [Suspect]
     Active Substance: PIRFENIDONE
     Indication: PULMONARY FIBROSIS
     Route: 048
     Dates: start: 20171222
  4. PROPAFENONE. [Concomitant]
     Active Substance: PROPAFENONE
  5. VITAMIN D [ERGOCALCIFEROL] [Concomitant]
     Active Substance: ERGOCALCIFEROL
  6. FOLIC ACID. [Concomitant]
     Active Substance: FOLIC ACID
  7. ISOSORBIDE DINITRATE. [Concomitant]
     Active Substance: ISOSORBIDE DINITRATE
  8. GEMFIBROZIL. [Concomitant]
     Active Substance: GEMFIBROZIL
  9. XARELTO [Concomitant]
     Active Substance: RIVAROXABAN
  10. LASIX [Concomitant]
     Active Substance: FUROSEMIDE
  11. LISINOPRIL. [Concomitant]
     Active Substance: LISINOPRIL
  12. POTASSIUM [Concomitant]
     Active Substance: POTASSIUM
  13. SYNTHROID [Concomitant]
     Active Substance: LEVOTHYROXINE SODIUM
  14. ZINC. [Concomitant]
     Active Substance: ZINC
  15. ATORVASTATIN CALCIUM. [Concomitant]
     Active Substance: ATORVASTATIN CALCIUM
  16. CARVEDILOL. [Concomitant]
     Active Substance: CARVEDILOL
     Route: 065
  17. KEFLEX [Concomitant]
     Active Substance: CEPHALEXIN
  18. PRILOSEC [Concomitant]
     Active Substance: OMEPRAZOLE MAGNESIUM
  19. TRADJENTA [Concomitant]
     Active Substance: LINAGLIPTIN

REACTIONS (1)
  - Death [Fatal]
